FAERS Safety Report 6984953-3 (Version None)
Quarter: 2010Q3

REPORT INFORMATION
  Report Type: 
  Country: None (occurrence: None)
  Receive Date: 20100915
  Receipt Date: 20100901
  Transmission Date: 20110219
  Serious: Yes (Other)
  Sender: FDA-Public Use
  Company Number: FR-ELI_LILLY_AND_COMPANY-FR201009000548

PATIENT
  Age: 49 Year
  Sex: Male

DRUGS (9)
  1. EFFIENT [Suspect]
     Dosage: 10 MG, UNKNOWN
     Route: 048
     Dates: start: 20100625, end: 20100803
  2. ZANTAC [Concomitant]
     Dosage: 75 MG, UNKNOWN
  3. KARDEGIC [Concomitant]
     Dosage: 75 MG, UNK
     Route: 048
  4. TEMERIT [Concomitant]
  5. TRIATEC [Concomitant]
     Dosage: 2.5 MG, UNKNOWN
  6. TAHOR [Concomitant]
     Dosage: 80 MG, UNKNOWN
  7. OMACOR [Concomitant]
  8. ACETAMINOPHEN [Concomitant]
     Dosage: 500 MG, UNKNOWN
  9. PLAVIX [Concomitant]

REACTIONS (2)
  - MYOCARDIAL INFARCTION [None]
  - SPONTANEOUS HAEMATOMA [None]
